FAERS Safety Report 21802729 (Version 1)
Quarter: 2022Q4

REPORT INFORMATION
  Report Type: Report from Study
  Country: MX (occurrence: MX)
  Receive Date: 20221231
  Receipt Date: 20221231
  Transmission Date: 20230113
  Serious: Yes (Other)
  Sender: FDA-Public Use
  Company Number: MX-002147023-PHHY2018MX023591

PATIENT
  Sex: Female
  Weight: 68 kg

DRUGS (1)
  1. GLYCOPYRRONIUM\INDACATEROL [Suspect]
     Active Substance: GLYCOPYRRONIUM\INDACATEROL
     Indication: Respiratory disorder
     Dosage: 1 DOSAGE FORM, QD, (110 UG INDACATEROL, 50 UG GLYCOPYRRONIUM BROMIDE, IN THE MORNING) (4 YEARS AGO)

REACTIONS (5)
  - Asphyxia [Recovered/Resolved with Sequelae]
  - Fatigue [Unknown]
  - Lung disorder [Unknown]
  - Wrong technique in product usage process [Unknown]
  - Product use in unapproved indication [Unknown]
